FAERS Safety Report 12455963 (Version 1)
Quarter: 2016Q2

REPORT INFORMATION
  Report Type: Spontaneous
  Country: US (occurrence: US)
  Receive Date: 20160610
  Receipt Date: 20160610
  Transmission Date: 20160815
  Serious: Yes (Other)
  Sender: FDA-Public Use
  Company Number: US-TARO-2011P1008666

PATIENT
  Age: 55 Year
  Sex: Female
  Weight: 77.11 kg

DRUGS (6)
  1. PREDNISONE. [Suspect]
     Active Substance: PREDNISONE
     Dates: start: 20110901
  2. TERCONAZOLE VAGINAL CREAM 0.4% [Suspect]
     Active Substance: TERCONAZOLE
     Indication: VULVOVAGINAL MYCOTIC INFECTION
     Dosage: 1 APPLICATOR,QHS
     Route: 067
     Dates: start: 20110801, end: 201108
  3. PEPTO-BISMOL [Suspect]
     Active Substance: BISMUTH SUBSALICYLATE
     Indication: ABDOMINAL PAIN UPPER
  4. MONOPRIL [Concomitant]
     Active Substance: FOSINOPRIL SODIUM
     Indication: HYPERTENSION
     Dosage: BID
  5. PRILOSEC [Concomitant]
     Active Substance: OMEPRAZOLE MAGNESIUM
  6. XANAX [Concomitant]
     Active Substance: ALPRAZOLAM
     Indication: INSOMNIA
     Dosage: .25 MG

REACTIONS (37)
  - Scar [Not Recovered/Not Resolved]
  - Burning sensation [Not Recovered/Not Resolved]
  - Muscle spasms [Unknown]
  - Skin tightness [Recovered/Resolved]
  - Swelling face [Recovered/Resolved]
  - Cough [Recovered/Resolved]
  - Hypersensitivity [Recovering/Resolving]
  - Skin discolouration [Not Recovered/Not Resolved]
  - Spinal flattening [Unknown]
  - Pain [Not Recovered/Not Resolved]
  - Abdominal pain upper [Recovered/Resolved]
  - Pharyngeal oedema [Unknown]
  - Neck pain [Recovered/Resolved]
  - Dry skin [Unknown]
  - Skin atrophy [Not Recovered/Not Resolved]
  - Urticaria [Unknown]
  - Burns second degree [Recovering/Resolving]
  - Anxiety [Recovered/Resolved]
  - Throat irritation [Recovered/Resolved]
  - Local swelling [Unknown]
  - Feeling abnormal [Not Recovered/Not Resolved]
  - Skin exfoliation [Recovering/Resolving]
  - Joint range of motion decreased [Recovered/Resolved]
  - Dyspnoea [Recovered/Resolved]
  - Throat tightness [Unknown]
  - Sunburn [Unknown]
  - Cervical radiculopathy [Unknown]
  - Diarrhoea [Recovered/Resolved]
  - Soft tissue disorder [Not Recovered/Not Resolved]
  - Thyroid mass [Unknown]
  - Wound [Not Recovered/Not Resolved]
  - Quality of life decreased [Not Recovered/Not Resolved]
  - Surgery [Unknown]
  - Rash papular [Recovered/Resolved]
  - Erythema [Recovered/Resolved]
  - Pain of skin [Unknown]
  - Emotional distress [Not Recovered/Not Resolved]

NARRATIVE: CASE EVENT DATE: 201108
